FAERS Safety Report 9413281 (Version 1)
Quarter: 2013Q3

REPORT INFORMATION
  Report Type: Spontaneous
  Country: DK (occurrence: DK)
  Receive Date: 20130722
  Receipt Date: 20130722
  Transmission Date: 20140515
  Serious: Yes (Life-Threatening)
  Sender: FDA-Public Use
  Company Number: CHNY2013DK001547

PATIENT
  Sex: Female

DRUGS (3)
  1. TAVEGYL [Suspect]
     Dosage: 1 MG, UNK
  2. TAVEGYL [Suspect]
     Dosage: UNK
  3. KODEIN [Concomitant]
     Indication: INFLAMMATORY BOWEL DISEASE
     Dosage: 25 MG, UNK

REACTIONS (6)
  - Colitis ulcerative [Unknown]
  - Fistula [Unknown]
  - Confusional state [Unknown]
  - Hallucination [Unknown]
  - Faecal incontinence [Unknown]
  - Tremor [Unknown]
